FAERS Safety Report 20592059 (Version 4)
Quarter: 2023Q1

REPORT INFORMATION
  Report Type: Report from Study
  Country: DE (occurrence: None)
  Receive Date: 20220314
  Receipt Date: 20230306
  Transmission Date: 20230418
  Serious: Yes (Hospitalization)
  Sender: FDA-Public Use
  Company Number: DE-ROCHE-3022833

PATIENT
  Age: 76 Year
  Sex: Male
  Weight: 83 kg

DRUGS (7)
  1. ATEZOLIZUMAB [Suspect]
     Active Substance: ATEZOLIZUMAB
     Indication: Hepatocellular carcinoma
     Dosage: ON 10/JAN/2022, 31/JAN/2022 RECEIVED LAST DOSE OF ATEZOLIZUMAB (1200 MG) BEFORE EVENT
     Route: 041
     Dates: start: 20211104
  2. BEVACIZUMAB [Suspect]
     Active Substance: BEVACIZUMAB
     Indication: Hepatocellular carcinoma
     Dosage: ON 10/JAN/2022, 31/JAN/2022 RECEIVED LAST DOSE OF BEVACIZUMAB BEFORE EVENT 15 MG/KG
     Route: 042
     Dates: start: 20211104
  3. SPIRONOLACTONE [Concomitant]
     Active Substance: SPIRONOLACTONE
     Route: 048
     Dates: end: 20220201
  4. TORSEMIDE [Concomitant]
     Active Substance: TORSEMIDE
     Indication: Myocardial oedema
     Route: 048
  5. CARVEDILOL [Concomitant]
     Active Substance: CARVEDILOL
  6. VALPROATE MAGNESIUM [Concomitant]
     Active Substance: VALPROATE MAGNESIUM
     Indication: Magnesium deficiency
     Route: 048
  7. THIAMINE [Concomitant]
     Active Substance: THIAMINE
     Route: 048

REACTIONS (3)
  - Fatigue [Recovered/Resolved with Sequelae]
  - Gastrointestinal haemorrhage [Recovered/Resolved]
  - Adrenal insufficiency [Recovered/Resolved with Sequelae]

NARRATIVE: CASE EVENT DATE: 20220125
